FAERS Safety Report 15607163 (Version 1)
Quarter: 2018Q4

REPORT INFORMATION
  Report Type: Spontaneous
  Country: FR (occurrence: FR)
  Receive Date: 20181112
  Receipt Date: 20181112
  Transmission Date: 20190205
  Serious: Yes (Other)
  Sender: FDA-Public Use
  Company Number: FR-ALLERGAN-1852504US

PATIENT
  Age: 81 Year
  Sex: Female

DRUGS (1)
  1. MEMANTINE HCL - BP [Suspect]
     Active Substance: MEMANTINE
     Indication: DEMENTIA ALZHEIMER^S TYPE
     Dosage: 2 DF, QD
     Route: 048
     Dates: start: 201504, end: 20180912

REACTIONS (4)
  - Abnormal behaviour [Not Recovered/Not Resolved]
  - Condition aggravated [Not Recovered/Not Resolved]
  - Product administration interrupted [Unknown]
  - Salivary hypersecretion [Not Recovered/Not Resolved]

NARRATIVE: CASE EVENT DATE: 201809
